FAERS Safety Report 9529237 (Version 1)
Quarter: 2013Q1

REPORT INFORMATION
  Report Type: Spontaneous
  Country: US (occurrence: None)
  Receive Date: 20130329
  Receipt Date: 20130329
  Transmission Date: 20140127
  Serious: No
  Sender: FDA-Public Use
  Company Number: 1000042357

PATIENT
  Age: 67 Year
  Sex: Male

DRUGS (2)
  1. LINZESS (LINACLOTIDE) (145 MICROGRAM, CAPSULES) [Suspect]
     Indication: CONSTIPATION
     Route: 048
     Dates: start: 20130130
  2. LISINOPRIL/HCTZ (LISINOPRIL, HYDROCHLOROTHIAZIDE) [Concomitant]

REACTIONS (2)
  - Diarrhoea [None]
  - Abdominal pain [None]
